FAERS Safety Report 19245195 (Version 2)
Quarter: 2021Q2

REPORT INFORMATION
  Report Type: Spontaneous
  Country: PK (occurrence: PK)
  Receive Date: 20210512
  Receipt Date: 20210526
  Transmission Date: 20210717
  Serious: Yes (Death)
  Sender: FDA-Public Use
  Company Number: PK-NOVOPROD-810196

PATIENT
  Age: 75 Year
  Sex: Female
  Weight: 110 kg

DRUGS (1)
  1. NOVOMIX 30 FLEXPEN [Suspect]
     Active Substance: INSULIN ASPART
     Indication: TYPE 2 DIABETES MELLITUS
     Dosage: 40+30
     Route: 058
     Dates: start: 20120501, end: 20210327

REACTIONS (1)
  - Myocardial infarction [Fatal]
